FAERS Safety Report 8128287-2 (Version None)
Quarter: 2012Q1

REPORT INFORMATION
  Report Type: 
  Country: None (occurrence: None)
  Receive Date: 20120210
  Receipt Date: 20120208
  Transmission Date: 20120608
  Serious: Yes (Hospitalization)
  Sender: FDA-Public Use
  Company Number: CA-ROCHE-1038627

PATIENT
  Sex: Female
  Weight: 64.468 kg

DRUGS (6)
  1. AVASTIN [Suspect]
     Indication: GLIOBLASTOMA
     Route: 042
     Dates: start: 20111118
  2. DILANTIN [Concomitant]
  3. AVASTIN [Suspect]
     Dates: start: 20120113, end: 20120126
  4. DECADRON [Concomitant]
  5. FRAGMIN [Concomitant]
  6. KEPPRA [Concomitant]

REACTIONS (3)
  - NAUSEA [None]
  - VERTIGO [None]
  - HEADACHE [None]
